FAERS Safety Report 8244964-7 (Version None)
Quarter: 2012Q1

REPORT INFORMATION
  Report Type: 
  Country: None (occurrence: None)
  Receive Date: 20120329
  Receipt Date: 20111128
  Transmission Date: 20120608
  Serious: No
  Sender: FDA-Public Use
  Company Number: US-MYLANLABS-2011S1022133

PATIENT
  Age: 82 Year
  Sex: Male

DRUGS (7)
  1. LIPITOR [Concomitant]
     Indication: LIPIDS INCREASED
  2. FENTANYL-100 [Suspect]
     Indication: NEUROPATHY PERIPHERAL
     Dosage: Q 48 HOUR
     Route: 062
     Dates: start: 20110801
  3. FENTANYL-100 [Suspect]
     Indication: BACK PAIN
     Dosage: Q 48 HOUR
     Route: 062
     Dates: start: 20110801
  4. HYDROCODONE BITARTRATE [Concomitant]
     Indication: PAIN
  5. AMBIEN [Concomitant]
     Indication: INSOMNIA
  6. CARDURA [Concomitant]
  7. ALLOPURINOL [Concomitant]
     Indication: GOUT

REACTIONS (2)
  - HOT FLUSH [None]
  - HYPERHIDROSIS [None]
